FAERS Safety Report 5857682-7 (Version None)
Quarter: 2008Q3

REPORT INFORMATION
  Report Type: 
  Country: None (occurrence: None)
  Receive Date: 20080826
  Receipt Date: 20080415
  Transmission Date: 20090109
  Serious: No
  Sender: FDA-Public Use
  Company Number: US-BAYER-200820482NA

PATIENT
  Sex: Female

DRUGS (4)
  1. YASMIN [Suspect]
     Indication: DRUG USE FOR UNKNOWN INDICATION
     Route: 048
  2. ZYFLAMEND [Concomitant]
  3. ALEVE [Concomitant]
     Indication: INFLAMMATION
  4. ADVIL LIQUI-GELS [Concomitant]
     Indication: INFLAMMATION

REACTIONS (1)
  - AMENORRHOEA [None]
